FAERS Safety Report 8844346 (Version 2)
Quarter: 2012Q4

REPORT INFORMATION
  Report Type: 
  Country: US (occurrence: None)
  Receive Date: 20121016
  Receipt Date: 20121016
  Transmission Date: 20130627
  Serious: Yes (Hospitalization, Disabling)
  Sender: FDA-Public Use
  Company Number: None

PATIENT
  Age: 81 Year
  Sex: Female

DRUGS (1)
  1. HYDROCORTISONE [Suspect]
     Dates: start: 20120521, end: 20120702

REACTIONS (2)
  - Meningitis cryptococcal [None]
  - Convulsion [None]
